FAERS Safety Report 6060383-6 (Version None)
Quarter: 2009Q1

REPORT INFORMATION
  Report Type: 
  Country: None (occurrence: None)
  Receive Date: 20090130
  Receipt Date: 20090130
  Transmission Date: 20090719
  Serious: Yes (Life-Threatening, Other)
  Sender: FDA-Public Use
  Company Number: None

PATIENT
  Age: 60 Year
  Sex: Female
  Weight: 58.9676 kg

DRUGS (3)
  1. MIRTAZAPINE [Suspect]
     Indication: DEPRESSION
     Dosage: LOWEST DOSE ONCE A DAY PO
     Route: 048
     Dates: start: 20070306, end: 20070823
  2. MIRTAZAPINE [Suspect]
     Indication: INSOMNIA
     Dosage: LOWEST DOSE ONCE A DAY PO
     Route: 048
     Dates: start: 20070306, end: 20070823
  3. REMERON [Concomitant]

REACTIONS (9)
  - BLOOD COUNT ABNORMAL [None]
  - BREAST INFECTION [None]
  - BREAST MASS [None]
  - DIZZINESS [None]
  - GAMMOPATHY [None]
  - HYPERTENSION [None]
  - INFLUENZA LIKE ILLNESS [None]
  - LYMPHADENOPATHY [None]
  - PROTEIN TOTAL ABNORMAL [None]
